FAERS Safety Report 6981504-4 (Version None)
Quarter: 2010Q3

REPORT INFORMATION
  Report Type: 
  Country: None (occurrence: None)
  Receive Date: 20100914
  Receipt Date: 20100902
  Transmission Date: 20110219
  Serious: Yes (Other)
  Sender: FDA-Public Use
  Company Number: PHFR2010GB03378

PATIENT

DRUGS (1)
  1. ZOLEDRONIC [Suspect]

REACTIONS (2)
  - DIVERTICULITIS [None]
  - MULTIPLE SCLEROSIS [None]
